FAERS Safety Report 7744499-1 (Version None)
Quarter: 2011Q3

REPORT INFORMATION
  Report Type: 
  Country: None (occurrence: None)
  Receive Date: 20110826
  Receipt Date: 20110819
  Transmission Date: 20111222
  Serious: Yes (Other)
  Sender: FDA-Public Use
  Company Number: 7075495

PATIENT
  Age: 45 Year
  Sex: Female

DRUGS (8)
  1. VANDETANIB [Suspect]
     Indication: THYROID CANCER
     Dosage: 300 MG (300 MG,1 IN 1 D)
     Dates: start: 20110516
  2. CALCIUM-D3 (CALCIUM CARBONATE, COLECALCIFEROL) [Concomitant]
  3. PAROXETINE HYDROCHLORIDE [Suspect]
     Indication: PRODUCT USED FOR UNKNOWN INDICATION
  4. UN-ALFA (ALFACALCIDOL) (ALFACALCIDOL) [Suspect]
     Indication: PRODUCT USED FOR UNKNOWN INDICATION
  5. LEVOTHYROXINE SODIUM [Suspect]
     Indication: PRODUCT USED FOR UNKNOWN INDICATION
  6. LEXOMIL (BROMAZEPAM) (BROMAZEPAM) [Suspect]
     Indication: PRODUCT USED FOR UNKNOWN INDICATION
  7. ZOPICLONE(ZOPICLONE) [Suspect]
     Indication: PRODUCT USED FOR UNKNOWN INDICATION
  8. KENZEN (CANDESARTAN CILEXETIL) (36 MG) (CANDESARTAN CILEXETIL) [Concomitant]

REACTIONS (1)
  - ELECTROCARDIOGRAM QT PROLONGED [None]
